FAERS Safety Report 8848567 (Version 13)
Quarter: 2015Q2

REPORT INFORMATION
  Report Type: Report from Study
  Country: US (occurrence: US)
  Receive Date: 20121018
  Receipt Date: 20150501
  Transmission Date: 20150821
  Serious: Yes (Hospitalization, Disabling, Other)
  Sender: FDA-Public Use
  Company Number: US-GLAXOSMITHKLINE-A0997870A

PATIENT
  Sex: Female

DRUGS (4)
  1. FLUTICASONE PROPIONATE+SALMETEROL XINAFOATE [Suspect]
     Active Substance: FLUTICASONE PROPIONATE\SALMETEROL XINAFOATE
     Indication: ASTHMA
  2. NEURONTIN [Suspect]
     Active Substance: GABAPENTIN
     Indication: PRODUCT USED FOR UNKNOWN INDICATION
     Dosage: UNK UNK, U
     Route: 065
  3. SALBUTAMOL SULPHATE [Suspect]
     Active Substance: ALBUTEROL SULFATE
     Indication: CHRONIC OBSTRUCTIVE PULMONARY DISEASE
     Route: 065
  4. FLUTICASONE PROPIONATE+SALMETEROL XINAFOATE [Suspect]
     Active Substance: FLUTICASONE PROPIONATE\SALMETEROL XINAFOATE
     Indication: CHRONIC OBSTRUCTIVE PULMONARY DISEASE
     Route: 065

REACTIONS (17)
  - Seizure [Unknown]
  - Fall [Unknown]
  - Diabetic neuropathy [Unknown]
  - Hospitalisation [Unknown]
  - Exposure to mould [Unknown]
  - Visual impairment [Unknown]
  - Haemorrhage [Unknown]
  - Lung neoplasm malignant [Unknown]
  - Surgery [Unknown]
  - General physical health deterioration [Unknown]
  - Type 2 diabetes mellitus [Unknown]
  - Asthma [Unknown]
  - Blindness [Unknown]
  - Basal cell carcinoma [Unknown]
  - Respiratory disorder [Unknown]
  - Central venous catheter removal [Unknown]
  - Von Willebrand^s disease [Unknown]

NARRATIVE: CASE EVENT DATE: 20130911
